FAERS Safety Report 6258205-3 (Version None)
Quarter: 2009Q3

REPORT INFORMATION
  Report Type: 
  Country: None (occurrence: None)
  Receive Date: 20090707
  Receipt Date: 20090701
  Transmission Date: 20100115
  Serious: Yes (Hospitalization)
  Sender: FDA-Public Use
  Company Number: US-JNJFOC-20090700920

PATIENT
  Age: 88 Year
  Sex: Male
  Weight: 57 kg

DRUGS (2)
  1. FENTANYL TRANSDERMAL SYSTEM [Suspect]
     Indication: PAIN IN EXTREMITY
     Route: 062
  2. UNKNOWN MEDICATION [Concomitant]
     Indication: CONSTIPATION
     Route: 065

REACTIONS (2)
  - HOSPITALISATION [None]
  - INTENTIONAL DRUG MISUSE [None]
